FAERS Safety Report 6241724-3 (Version None)
Quarter: 2009Q2

REPORT INFORMATION
  Report Type: 
  Country: None (occurrence: None)
  Receive Date: 20090623
  Receipt Date: 20061128
  Transmission Date: 20091009
  Serious: Yes (Other)
  Sender: FDA-Public Use
  Company Number: FR-ROCHE-472955

PATIENT
  Age: 52 Year
  Sex: Female

DRUGS (6)
  1. PEG-INTERFERON A-2A (RO 25-8310) [Suspect]
     Indication: HEPATITIS C
     Route: 065
     Dates: start: 20030101, end: 20040901
  2. RIBAVIRIN [Suspect]
     Indication: HEPATITIS C
     Route: 065
     Dates: start: 20000101
  3. RIBAVIRIN [Suspect]
     Route: 065
     Dates: start: 20030101, end: 20040901
  4. INTERFERON ALFA [Suspect]
     Indication: HEPATITIS C
     Route: 065
     Dates: start: 20000101
  5. ATORVASTATIN CALCIUM [Concomitant]
  6. PAROXETINE HCL [Concomitant]
     Indication: DEPRESSION

REACTIONS (4)
  - ALOPECIA [None]
  - GRANULOMA ANNULARE [None]
  - HYPOTHYROIDISM [None]
  - PIGMENTATION BUCCAL [None]
